FAERS Safety Report 9109915 (Version 5)
Quarter: 2014Q3

REPORT INFORMATION
  Report Type: Spontaneous
  Country: US (occurrence: US)
  Receive Date: 20130222
  Receipt Date: 20140909
  Transmission Date: 20150326
  Serious: Yes (Hospitalization, Other)
  Sender: FDA-Public Use
  Company Number: US-009507513-1205USA02635

PATIENT
  Sex: Female
  Weight: 68.27 kg

DRUGS (5)
  1. FOSAMAX [Suspect]
     Active Substance: ALENDRONATE SODIUM
     Indication: ARTHRITIS
     Dosage: 70 MG, QW
     Route: 048
     Dates: end: 200804
  2. ALENDRONATE SODIUM. [Suspect]
     Active Substance: ALENDRONATE SODIUM
     Indication: ARTHRITIS
  3. ALENDRONATE SODIUM. [Suspect]
     Active Substance: ALENDRONATE SODIUM
     Indication: OSTEOPOROSIS
     Dosage: 70 MG, QW
     Route: 048
     Dates: start: 20080530, end: 201103
  4. PROAIR HFA [Concomitant]
     Active Substance: ALBUTEROL SULFATE
     Indication: CHRONIC OBSTRUCTIVE PULMONARY DISEASE
     Dosage: UNK
     Dates: start: 1990
  5. FOSAMAX [Suspect]
     Active Substance: ALENDRONATE SODIUM
     Indication: OSTEOPOROSIS
     Dosage: 10 MG, UNK
     Route: 048
     Dates: start: 1996, end: 20020816

REACTIONS (33)
  - Anxiety [Unknown]
  - Spondylolisthesis [Unknown]
  - Osteoarthritis [Unknown]
  - Paraesthesia [Unknown]
  - Foot fracture [Unknown]
  - Off label use [Unknown]
  - Femur fracture [Recovered/Resolved]
  - Intervertebral disc degeneration [Unknown]
  - Knee arthroplasty [Unknown]
  - Arthropathy [Unknown]
  - Low turnover osteopathy [Unknown]
  - Fractured sacrum [Unknown]
  - Asthma [Unknown]
  - Neck pain [Not Recovered/Not Resolved]
  - Gastrooesophageal reflux disease [Unknown]
  - Renal impairment [Unknown]
  - Aspergillus infection [Unknown]
  - Adverse drug reaction [Unknown]
  - Hypertension [Unknown]
  - Rotator cuff syndrome [Unknown]
  - Arthropathy [Unknown]
  - Lumbar spinal stenosis [Unknown]
  - Cervical radiculopathy [Unknown]
  - Nerve compression [Unknown]
  - Intervertebral disc protrusion [Unknown]
  - Muscular weakness [Unknown]
  - Asthenia [Unknown]
  - Shoulder arthroplasty [Unknown]
  - Intervertebral disc degeneration [Unknown]
  - Adverse event [Unknown]
  - Infection [Unknown]
  - Inflammation [Unknown]
  - Nausea [Unknown]

NARRATIVE: CASE EVENT DATE: 1995
